FAERS Safety Report 8566352 (Version 3)
Quarter: 2012Q4

REPORT INFORMATION
  Report Type: 
  Country: US (occurrence: US)
  Receive Date: 20120517
  Receipt Date: 20121205
  Transmission Date: 20130627
  Serious: Yes (Other)
  Sender: FDA-Public Use
  Company Number: PHHY2011US15286

PATIENT
  Sex: Female

DRUGS (2)
  1. EXTAVIA [Suspect]
     Indication: MULTIPLE SCLEROSIS
     Dosage: 0.25 mg, QOD
     Route: 058
     Dates: start: 20110219, end: 20120319
  2. ALEVE                              /00256202/ [Concomitant]
     Indication: MULTIPLE SCLEROSIS

REACTIONS (17)
  - Colon cancer [Recovering/Resolving]
  - Fall [Recovering/Resolving]
  - Fluid retention [Recovering/Resolving]
  - Gait disturbance [Recovering/Resolving]
  - Balance disorder [Recovering/Resolving]
  - Hypersomnia [Recovering/Resolving]
  - Feeling abnormal [Recovering/Resolving]
  - Muscle spasms [Recovering/Resolving]
  - Rash pruritic [Recovering/Resolving]
  - Limb discomfort [Recovering/Resolving]
  - Back pain [Recovering/Resolving]
  - Constipation [Recovering/Resolving]
  - Confusional state [Recovering/Resolving]
  - Asthenia [Recovering/Resolving]
  - Headache [Recovering/Resolving]
  - Injection site reaction [Recovering/Resolving]
  - Injection site pain [Recovering/Resolving]
